FAERS Safety Report 21955172 (Version 3)
Quarter: 2023Q1

REPORT INFORMATION
  Report Type: Report from Study
  Country: US (occurrence: US)
  Receive Date: 20230206
  Receipt Date: 20230313
  Transmission Date: 20230417
  Serious: Yes (Other)
  Sender: FDA-Public Use
  Company Number: US-ABBVIE-4293776

PATIENT
  Sex: Female

DRUGS (1)
  1. IMBRUVICA [Suspect]
     Active Substance: IBRUTINIB
     Indication: Chronic lymphocytic leukaemia
     Route: 048
     Dates: start: 202208

REACTIONS (5)
  - Pulmonary oedema [Recovered/Resolved]
  - Lymphadenopathy [Recovered/Resolved]
  - Increased tendency to bruise [Unknown]
  - Back pain [Unknown]
  - Illness [Recovered/Resolved]

NARRATIVE: CASE EVENT DATE: 20230101
